FAERS Safety Report 24971217 (Version 2)
Quarter: 2025Q1

REPORT INFORMATION
  Report Type: Report from Study
  Country: DE (occurrence: DE)
  Receive Date: 20250214
  Receipt Date: 20250310
  Transmission Date: 20250409
  Serious: Yes (Other)
  Sender: UCB
  Company Number: DE-UCBSA-2024037948

PATIENT
  Age: 59 Year
  Sex: Male
  Weight: 77 kg

DRUGS (18)
  1. BIMEKIZUMAB [Suspect]
     Active Substance: BIMEKIZUMAB
     Indication: Psoriatic arthropathy
     Dosage: 160 MILLIGRAM, EV 4 WEEKS
     Route: 058
     Dates: start: 20240118
  2. BIMEKIZUMAB [Suspect]
     Active Substance: BIMEKIZUMAB
     Dosage: 160 MILLIGRAM, EV 4 WEEKS
     Dates: start: 20240215
  3. BIMEKIZUMAB [Suspect]
     Active Substance: BIMEKIZUMAB
     Dosage: 160 MILLIGRAM, EV 4 WEEKS
     Dates: start: 20240314
  4. BIMEKIZUMAB [Suspect]
     Active Substance: BIMEKIZUMAB
     Dosage: 160 MILLIGRAM, EV 4 WEEKS
     Dates: start: 20240411
  5. BIMEKIZUMAB [Suspect]
     Active Substance: BIMEKIZUMAB
     Dosage: 160 MILLIGRAM, EV 4 WEEKS
     Dates: start: 20240509
  6. BIMEKIZUMAB [Suspect]
     Active Substance: BIMEKIZUMAB
     Dosage: 160 MILLIGRAM, EV 4 WEEKS
     Dates: start: 20240606
  7. BIMEKIZUMAB [Suspect]
     Active Substance: BIMEKIZUMAB
     Dosage: 160 MILLIGRAM, EV 4 WEEKS
     Dates: start: 20240704, end: 20241125
  8. METHOTREXATE [Suspect]
     Active Substance: METHOTREXATE
     Indication: Psoriatic arthropathy
     Dosage: 5 MILLIGRAM, WEEKLY (QW)
     Route: 048
     Dates: start: 20231221
  9. METHOTREXATE [Suspect]
     Active Substance: METHOTREXATE
     Dates: start: 200007, end: 200112
  10. METHOTREXATE [Suspect]
     Active Substance: METHOTREXATE
     Dates: start: 200312, end: 200602
  11. PANTOPRAZOLE [Concomitant]
     Active Substance: PANTOPRAZOLE
     Indication: Prophylaxis
     Dosage: 40 MILLIGRAM, ONCE DAILY (QD)
     Dates: start: 201003
  12. ASPIRIN [Concomitant]
     Active Substance: ASPIRIN
     Indication: Coronary artery disease
     Dosage: 100 MILLIGRAM, ONCE DAILY (QD)
     Dates: start: 202207
  13. BISOPROLOL [Concomitant]
     Active Substance: BISOPROLOL
     Indication: Coronary artery disease
     Dosage: 2.5 MILLIGRAM, ONCE DAILY (QD)
     Dates: start: 202207
  14. EZEHRON [Concomitant]
     Indication: Hypercholesterolaemia
     Dosage: 10 MILLIGRAM, ONCE DAILY (QD)
     Dates: start: 20221215
  15. CHOLECALCIFEROL [Concomitant]
     Active Substance: CHOLECALCIFEROL
     Indication: Vitamin D deficiency
     Dosage: 1000 INTERNATIONAL UNIT, ONCE DAILY (QD)
     Dates: start: 202002
  16. MIRTAZAPINE [Concomitant]
     Active Substance: MIRTAZAPINE
     Indication: Depressed mood
     Dosage: 45 MILLIGRAM, ONCE DAILY (QD)
     Dates: start: 202002
  17. AMPHO-MORONAL [Concomitant]
     Active Substance: AMPHOTERICIN B
     Indication: Product used for unknown indication
  18. TRAMAGIT [Concomitant]
     Dosage: 100 MILLIGRAM, 2X/DAY (BID)
     Dates: start: 200507

REACTIONS (3)
  - Renal failure [Not Recovered/Not Resolved]
  - Gingival recession [Recovered/Resolved]
  - Oral candidiasis [Not Recovered/Not Resolved]

NARRATIVE: CASE EVENT DATE: 20240101
